FAERS Safety Report 10950245 (Version 7)
Quarter: 2015Q4

REPORT INFORMATION
  Report Type: Spontaneous
  Country: US (occurrence: US)
  Receive Date: 20150324
  Receipt Date: 20151209
  Transmission Date: 20160304
  Serious: Yes (Hospitalization, Congenital Anomaly, Other)
  Sender: FDA-Public Use
  Company Number: US-ELI_LILLY_AND_COMPANY-US201503005461

PATIENT
  Age: 0 Day
  Sex: Female

DRUGS (1)
  1. PROZAC [Suspect]
     Active Substance: FLUOXETINE HYDROCHLORIDE
     Indication: DEPRESSION
     Dosage: UNK UNK, UNKNOWN
     Route: 064

REACTIONS (16)
  - Respiratory disorder [Unknown]
  - Paraesthesia [Unknown]
  - Bronchospasm [Unknown]
  - Foetal exposure during pregnancy [Unknown]
  - Vomiting [Unknown]
  - Tachypnoea [Unknown]
  - Pain in extremity [Unknown]
  - Viral infection [Unknown]
  - Concussion [Unknown]
  - Headache [Recovering/Resolving]
  - Respiratory distress [Unknown]
  - Arnold-Chiari malformation [Unknown]
  - Wheezing [Unknown]
  - Abdominal hernia [Recovered/Resolved]
  - Asthma [Unknown]
  - Headache [Unknown]

NARRATIVE: CASE EVENT DATE: 20030907
